FAERS Safety Report 24021744 (Version 2)
Quarter: 2024Q2

REPORT INFORMATION
  Report Type: Report from Study
  Country: US (occurrence: US)
  Receive Date: 20240627
  Receipt Date: 20240627
  Transmission Date: 20240716
  Serious: No
  Sender: FDA-Public Use
  Company Number: US-ROCHE-3527068

PATIENT
  Age: 61 Year
  Sex: Female
  Weight: 136.08 kg

DRUGS (15)
  1. VABYSMO [Suspect]
     Active Substance: FARICIMAB\FARICIMAB-SVOA
     Indication: Retinal haemorrhage
     Dosage: EYE INJECTIONS
     Route: 065
     Dates: start: 2022
  2. VABYSMO [Suspect]
     Active Substance: FARICIMAB\FARICIMAB-SVOA
     Indication: Diabetic retinopathy
  3. VABYSMO [Suspect]
     Active Substance: FARICIMAB\FARICIMAB-SVOA
     Indication: Macular oedema
  4. ELIQUIS [Concomitant]
     Active Substance: APIXABAN
     Indication: Atrial fibrillation
     Dosage: ORAL PILL 2.5 MG TWICE A DAY
  5. VELPHORO [Concomitant]
     Active Substance: SUCROFERRIC OXYHYDROXIDE
     Dosage: ORAL CHEWABLE TABLET 500 MG THRICE A DAY, TAKEN BEFORE MEALS ;ONGOING: YES
     Dates: start: 2021
  6. COLACE [Concomitant]
     Active Substance: DOCUSATE SODIUM
     Dosage: ORAL PILL 100 MG ONCE A DAY
     Dates: start: 2021
  7. METOPROLOL [Concomitant]
     Active Substance: METOPROLOL
     Dosage: ORAL PILL 25 MG TWICE A DAY TAKES 1/2 PILL TWICE A DAY ;ONGOING: YES
  8. BUMETANIDE [Concomitant]
     Active Substance: BUMETANIDE
     Dosage: ORAL PILL 2 MG TWICE A DAY
  9. MIDODRINE [Concomitant]
     Active Substance: MIDODRINE
     Indication: Hypotension
     Dosage: ORAL PILL 5 MG THRICE A DAY
     Dates: start: 2021
  10. TRULICITY [Concomitant]
     Active Substance: DULAGLUTIDE
     Indication: Diabetes mellitus
     Dosage: 1.5 MG ONCE A WEEK
     Route: 058
     Dates: start: 2022
  11. INSULIN LISPRO [Concomitant]
     Active Substance: INSULIN LISPRO
     Indication: Diabetes mellitus
     Dosage: 8 IU THRICE A DAY MAY USE ADDITIONAL DOSES FOR ADDITIONAL MEALS ;ONGOING: YES
     Route: 058
     Dates: start: 2020
  12. MEDROXYPROGESTERONE ACETATE [Concomitant]
     Active Substance: MEDROXYPROGESTERONE ACETATE
     Indication: Postmenopausal haemorrhage
     Dosage: ORAL PILL 20 MG TWICE A DAY
     Dates: start: 2023
  13. PROGESTERONE [Concomitant]
     Active Substance: PROGESTERONE
     Indication: Postmenopausal haemorrhage
     Dosage: ORAL PILL 200 MG ONCE A DAY TAKEN AT NIGHT ;ONGOING: YES
     Dates: start: 2023
  14. METHIMAZOLE [Concomitant]
     Active Substance: METHIMAZOLE
     Indication: Hypothyroidism
     Dosage: ORAL PILL 5 MG TWICE A DAY
  15. TAMSULOSIN [Concomitant]
     Active Substance: TAMSULOSIN
     Indication: Nephrolithiasis
     Dosage: ORAL PILL 0.4 MG ONCE A DAY
     Dates: start: 2023

REACTIONS (3)
  - Off label use [Unknown]
  - Nephrolithiasis [Recovered/Resolved]
  - Postmenopausal haemorrhage [Recovered/Resolved]

NARRATIVE: CASE EVENT DATE: 20220101
